FAERS Safety Report 6683053-X (Version None)
Quarter: 2010Q2

REPORT INFORMATION
  Report Type: 
  Country: None (occurrence: None)
  Receive Date: 20100415
  Receipt Date: 20100406
  Transmission Date: 20101027
  Serious: Yes (Hospitalization)
  Sender: FDA-Public Use
  Company Number: PHHY2010BR21386

PATIENT
  Age: 16 Year
  Sex: Male
  Weight: 65 kg

DRUGS (1)
  1. RITALIN [Suspect]
     Dosage: 8 DF, ONCE/SINGLE
     Dates: start: 20100406

REACTIONS (2)
  - GASTRIC LAVAGE [None]
  - OVERDOSE [None]
